FAERS Safety Report 8965570 (Version 1)
Quarter: 2012Q4

REPORT INFORMATION
  Report Type: Spontaneous
  Country: AU (occurrence: None)
  Receive Date: 20121205
  Receipt Date: 20121205
  Transmission Date: 20130627
  Serious: Yes (Hospitalization, Disabling)
  Sender: FDA-Public Use
  Company Number: AU-1195528

PATIENT
  Age: 82 Year
  Sex: Female

DRUGS (3)
  1. MAXIDEX [Suspect]
     Indication: OCULAR HYPERAEMIA
     Dosage: QIW
     Route: 047
  2. MAXIDEX [Suspect]
     Indication: EYE PAIN
     Dosage: QIW
     Route: 047
  3. MAXIDEX [Suspect]
     Indication: EYE DISCHARGE
     Dosage: QIW
     Route: 047

REACTIONS (4)
  - Corneal abscess [None]
  - Keratitis bacterial [None]
  - Conjunctivitis infective [None]
  - Pseudomonas test positive [None]
